FAERS Safety Report 4374790-0 (Version None)
Quarter: 2004Q2

REPORT INFORMATION
  Report Type: 
  Country: None (occurrence: None)
  Receive Date: 20040604
  Receipt Date: 20040524
  Transmission Date: 20050107
  Serious: No
  Sender: FDA-Public Use
  Company Number: 2004212888FR

PATIENT
  Age: 72 Year
  Sex: Female

DRUGS (5)
  1. CELEBREX [Suspect]
     Dosage: QD, ORAL
     Route: 048
     Dates: start: 20030715
  2. ECAZIDE(HYDROCHLOROTHIAZIDE, CAPTOPRIL) [Suspect]
     Dosage: 50MG/25 MG, ORAL
     Route: 048
  3. REVIA [Suspect]
     Dosage: 50 MG, QD, ORAL
     Route: 048
  4. CLONAZEPAM [Suspect]
     Dosage: 4 DF, QD, ORAL
     Route: 048
     Dates: end: 20040102
  5. TRAMADOL HCL [Suspect]
     Dosage: QD, ORAL
     Route: 048
     Dates: start: 20031218, end: 20040102

REACTIONS (9)
  - ANOREXIA [None]
  - ASTHENIA [None]
  - BALANCE DISORDER [None]
  - CONFUSIONAL STATE [None]
  - DEPRESSION [None]
  - GENERAL PHYSICAL HEALTH DETERIORATION [None]
  - PAIN IN EXTREMITY [None]
  - SOMNOLENCE [None]
  - TREATMENT NONCOMPLIANCE [None]
